FAERS Safety Report 18875359 (Version 11)
Quarter: 2021Q3

REPORT INFORMATION
  Report Type: Report from Study
  Country: BR (occurrence: BR)
  Receive Date: 20210210
  Receipt Date: 20210930
  Transmission Date: 20211014
  Serious: Yes (Hospitalization, Other)
  Sender: FDA-Public Use
  Company Number: NVSC2021BR022677

PATIENT
  Age: 66 Year
  Sex: Female
  Weight: 58 kg

DRUGS (17)
  1. FULVESTRANT SANDOZ [Suspect]
     Active Substance: FULVESTRANT
     Indication: HORMONE THERAPY
     Dosage: UNK
     Route: 065
  2. RIBOCICLIB. [Concomitant]
     Active Substance: RIBOCICLIB
     Dosage: 3 DF
     Route: 065
     Dates: start: 20210104
  3. RIBOCICLIB. [Concomitant]
     Active Substance: RIBOCICLIB
     Indication: BREAST NEOPLASM
     Dosage: 200 MG
     Route: 065
  4. ZOMETA [Suspect]
     Active Substance: ZOLEDRONIC ACID
     Indication: METASTASES TO BONE
     Dosage: UNK, Q3MO
     Route: 065
     Dates: start: 201901
  5. ZOMETA [Suspect]
     Active Substance: ZOLEDRONIC ACID
     Indication: BREAST CANCER
     Dosage: UNK, Q3MO (AMPOULE)
     Route: 065
     Dates: start: 201911
  6. FULVESTRANT SANDOZ [Suspect]
     Active Substance: FULVESTRANT
     Indication: BREAST NEOPLASM
     Dosage: UNK
     Route: 065
     Dates: start: 201901
  7. FULVESTRANT SANDOZ [Suspect]
     Active Substance: FULVESTRANT
     Indication: BREAST CANCER
     Dosage: UNK, Q4W
     Route: 065
     Dates: start: 201911
  8. RIBOCICLIB. [Concomitant]
     Active Substance: RIBOCICLIB
     Indication: BREAST CANCER
     Dosage: 3 DF, QD (FOR 21 DAYS AND 7 DAY?BREAK)
     Route: 065
     Dates: start: 20210104
  9. RIBOCICLIB. [Concomitant]
     Active Substance: RIBOCICLIB
     Dosage: UNK
     Route: 065
     Dates: start: 20210104
  10. TAMOXIFEN [Concomitant]
     Active Substance: TAMOXIFEN
     Indication: PRODUCT USED FOR UNKNOWN INDICATION
     Dosage: UNK
     Route: 065
  11. FLU VACCINE VII [Concomitant]
     Active Substance: INFLUENZA VIRUS VACCINE
     Indication: PRODUCT USED FOR UNKNOWN INDICATION
     Dosage: UNK
     Route: 065
     Dates: start: 2020
  12. FLUCONAZOLE. [Concomitant]
     Active Substance: FLUCONAZOLE
     Indication: VULVOVAGINAL DISCOMFORT
     Dosage: UNK
     Route: 065
  13. RIBOCICLIB. [Concomitant]
     Active Substance: RIBOCICLIB
     Dosage: 3 DF, QD (FOR 21 DAYS AND 7 DAY?BREAK)
     Route: 065
     Dates: start: 20210104
  14. SYSTANE (HYPROMELLOSE 2910 (4000 MPA.S)) [Concomitant]
     Active Substance: HYPROMELLOSE 2910 (4000 MPA.S)
     Indication: EYE IRRITATION
     Dosage: UNK, TID
     Route: 065
  15. ZOMETA [Suspect]
     Active Substance: ZOLEDRONIC ACID
     Indication: HORMONE THERAPY
  16. RIBOCICLIB. [Concomitant]
     Active Substance: RIBOCICLIB
     Dosage: 3 DF
     Route: 065
     Dates: start: 202101
  17. ANASTROZOLE. [Concomitant]
     Active Substance: ANASTROZOLE
     Indication: PRODUCT USED FOR UNKNOWN INDICATION
     Dosage: UNK
     Route: 065

REACTIONS (92)
  - Loss of consciousness [Unknown]
  - Haemangioma rupture [Unknown]
  - Skin exfoliation [Recovering/Resolving]
  - Dry throat [Not Recovered/Not Resolved]
  - Haemangioma [Unknown]
  - Disease progression [Unknown]
  - Rhinitis [Unknown]
  - Frostbite [Unknown]
  - Haematoma [Recovering/Resolving]
  - Petechiae [Unknown]
  - Neutrophil count decreased [Unknown]
  - Swelling of eyelid [Unknown]
  - Sinusitis [Unknown]
  - Gastrointestinal disorder [Not Recovered/Not Resolved]
  - Hiatus hernia [Unknown]
  - Panic disorder [Recovering/Resolving]
  - Astigmatism [Unknown]
  - Ear disorder [Not Recovered/Not Resolved]
  - Immunodeficiency [Recovered/Resolved]
  - Spinal cord disorder [Unknown]
  - Alopecia [Not Recovered/Not Resolved]
  - Dry skin [Not Recovered/Not Resolved]
  - Feeding disorder [Unknown]
  - Eyelid disorder [Unknown]
  - Vein disorder [Recovered/Resolved]
  - Trichorrhexis [Unknown]
  - Nasal pruritus [Unknown]
  - Dry eye [Not Recovered/Not Resolved]
  - Head discomfort [Unknown]
  - Abdominal discomfort [Not Recovered/Not Resolved]
  - Chills [Not Recovered/Not Resolved]
  - Dry mouth [Unknown]
  - Drug intolerance [Unknown]
  - Liver injury [Unknown]
  - Metastases to bone [Recovered/Resolved]
  - Metastases to spine [Not Recovered/Not Resolved]
  - Immunodeficiency [Unknown]
  - Pruritus [Not Recovered/Not Resolved]
  - Neoplasm [Unknown]
  - Pain [Recovering/Resolving]
  - Oral herpes [Unknown]
  - Haemorrhoids [Unknown]
  - Pyrexia [Unknown]
  - Constipation [Not Recovered/Not Resolved]
  - Epistaxis [Recovering/Resolving]
  - Nasal dryness [Not Recovered/Not Resolved]
  - Skin disorder [Not Recovered/Not Resolved]
  - Reflux gastritis [Unknown]
  - Visual impairment [Not Recovered/Not Resolved]
  - Weight decreased [Unknown]
  - Ocular hyperaemia [Unknown]
  - Rectocele [Not Recovered/Not Resolved]
  - Head injury [Recovering/Resolving]
  - Nasal injury [Not Recovered/Not Resolved]
  - Wound [Not Recovered/Not Resolved]
  - Skin lesion [Not Recovered/Not Resolved]
  - Metastasis [Unknown]
  - Metastases to bone [Unknown]
  - Face injury [Not Recovered/Not Resolved]
  - Vulvovaginal burning sensation [Recovered/Resolved]
  - Gait disturbance [Unknown]
  - Tumour marker increased [Unknown]
  - Bursitis [Unknown]
  - Illness [Unknown]
  - Eyelid ptosis [Unknown]
  - PIK3CA-activated mutation [Unknown]
  - Swelling [Unknown]
  - Injury [Not Recovered/Not Resolved]
  - Nasal discomfort [Unknown]
  - Asthenopia [Unknown]
  - Vulvovaginal exfoliation [Unknown]
  - Paraesthesia [Unknown]
  - White blood cell count decreased [Unknown]
  - Fatigue [Unknown]
  - Application site bruise [Unknown]
  - Skin atrophy [Unknown]
  - Discouragement [Unknown]
  - Aphthous ulcer [Unknown]
  - Rhinitis allergic [Unknown]
  - Sitting disability [Unknown]
  - Malaise [Unknown]
  - Application site pain [Unknown]
  - Urinary tract infection [Recovered/Resolved]
  - Lip dry [Unknown]
  - Application site swelling [Recovering/Resolving]
  - Spinal cord injury [Not Recovered/Not Resolved]
  - Erythema [Not Recovered/Not Resolved]
  - Vulvovaginal dryness [Not Recovered/Not Resolved]
  - Vulvovaginal discomfort [Not Recovered/Not Resolved]
  - Hair texture abnormal [Unknown]
  - Oestrogen deficiency [Not Recovered/Not Resolved]
  - Hypermetropia [Unknown]

NARRATIVE: CASE EVENT DATE: 2019
